FAERS Safety Report 5019989-5 (Version None)
Quarter: 2006Q2

REPORT INFORMATION
  Report Type: 
  Country: None (occurrence: None)
  Receive Date: 20060602
  Receipt Date: 20060529
  Transmission Date: 20061013
  Serious: Yes (Hospitalization, Other)
  Sender: FDA-Public Use
  Company Number: 200612230GDS

PATIENT
  Age: 84 Year
  Sex: Female

DRUGS (1)
  1. SORAFENIB [Suspect]
     Indication: RENAL CELL CARCINOMA STAGE UNSPECIFIED
     Dosage: 800 MG, TOTAL DAILY ,ORAL
     Route: 048

REACTIONS (2)
  - HYPERTENSION [None]
  - ISCHAEMIA [None]
